FAERS Safety Report 20566653 (Version 2)
Quarter: 2022Q1

REPORT INFORMATION
  Report Type: Spontaneous
  Country: JP (occurrence: JP)
  Receive Date: 20220308
  Receipt Date: 20220318
  Transmission Date: 20220423
  Serious: Yes (Other)
  Sender: FDA-Public Use
  Company Number: ALC2022JP001089

PATIENT
  Age: 74 Year
  Sex: Female

DRUGS (3)
  1. BSS PLUS [Suspect]
     Active Substance: CALCIUM CHLORIDE\DEXTROSE\MAGNESIUM CHLORIDE\OXIGLUTATIONE\POTASSIUM CHLORIDE\SODIUM BICARBONATE\SOD
     Indication: Cataract operation
     Dosage: UNK
     Route: 065
  2. ALLOPURINOL [Suspect]
     Active Substance: ALLOPURINOL
     Indication: Product used for unknown indication
     Route: 065
  3. CHONDROITIN SULFATE (BOVINE)\HYALURONATE SODIUM [Suspect]
     Active Substance: CHONDROITIN SULFATE (BOVINE)\HYALURONATE SODIUM
     Indication: Product used for unknown indication
     Dosage: UNK
     Route: 065

REACTIONS (4)
  - Toxic anterior segment syndrome [Recovering/Resolving]
  - Endophthalmitis [Recovering/Resolving]
  - Fibrin [Recovering/Resolving]
  - Post procedural inflammation [Recovering/Resolving]

NARRATIVE: CASE EVENT DATE: 20220216
